FAERS Safety Report 9344540 (Version 1)
Quarter: 2013Q2

REPORT INFORMATION
  Report Type: Spontaneous
  Country: US (occurrence: None)
  Receive Date: 20130611
  Receipt Date: 20130611
  Transmission Date: 20140414
  Serious: Yes (Hospitalization)
  Sender: FDA-Public Use
  Company Number: None

PATIENT
  Sex: Male

DRUGS (6)
  1. VICTRELIS [Suspect]
     Indication: HEPATITIS C
     Route: 048
     Dates: start: 20130419, end: 20130601
  2. RIBAPAK [Concomitant]
  3. PEGASYS [Concomitant]
  4. TRAMADOL [Concomitant]
  5. KENALOG [Concomitant]
  6. MOBIC [Concomitant]

REACTIONS (2)
  - Pyrexia [None]
  - Gastrointestinal disorder [None]
